FAERS Safety Report 4604489-4 (Version None)
Quarter: 2005Q2

REPORT INFORMATION
  Report Type: 
  Country: None (occurrence: None)
  Receive Date: 20050223
  Receipt Date: 20041117
  Transmission Date: 20051028
  Serious: No
  Sender: FDA-Public Use
  Company Number: PHEH2004US12432

PATIENT
  Age: 59 Year
  Sex: Female

DRUGS (3)
  1. ZELNORM [Suspect]
     Indication: REFLUX OESOPHAGITIS
     Dosage: 1/2 OF A 6 MG TAB BID, ORAL;  6 MG, BID, ORAL
     Route: 048
  2. PREVACID [Concomitant]
  3. WELLBUTRIN [Concomitant]

REACTIONS (1)
  - DEPRESSION [None]
